FAERS Safety Report 16444224 (Version 1)
Quarter: 2019Q2

REPORT INFORMATION
  Report Type: Spontaneous
  Country: US (occurrence: US)
  Receive Date: 20190508
  Receipt Date: 20190508
  Transmission Date: 20190711
  Serious: Yes (Other)
  Sender: FDA-Public Use
  Company Number: None

PATIENT
  Age: 69 Year
  Sex: Male

DRUGS (15)
  1. ACE3YL SALICYLIC ACID [Concomitant]
  2. CYMBALTA [Concomitant]
     Active Substance: DULOXETINE HYDROCHLORIDE
  3. LACTULOSE. [Concomitant]
     Active Substance: LACTULOSE
  4. TECFIDERA [Suspect]
     Active Substance: DIMETHYL FUMARATE
     Indication: MULTIPLE SCLEROSIS
     Route: 048
     Dates: start: 20131217
  5. NYDROCHLOROTHIAZIDE [Concomitant]
  6. CALCIUM [Concomitant]
     Active Substance: CALCIUM
  7. LEVEMIR [Concomitant]
     Active Substance: INSULIN DETEMIR
  8. TRICOR [Concomitant]
     Active Substance: FENOFIBRATE
  9. TORADOL [Concomitant]
     Active Substance: KETOROLAC TROMETHAMINE
  10. ZOCOR [Concomitant]
     Active Substance: SIMVASTATIN
  11. COZAAR [Concomitant]
     Active Substance: LOSARTAN POTASSIUM
  12. NORVASC [Concomitant]
     Active Substance: AMLODIPINE BESYLATE
  13. BACLOFEN. [Concomitant]
     Active Substance: BACLOFEN
  14. PROTONIX [Concomitant]
     Active Substance: PANTOPRAZOLE SODIUM
  15. TOPROL XL [Concomitant]
     Active Substance: METOPROLOL SUCCINATE

REACTIONS (1)
  - Renal cancer [None]
